FAERS Safety Report 18954434 (Version 1)
Quarter: 2021Q1

REPORT INFORMATION
  Report Type: Report from Study
  Country: US (occurrence: US)
  Receive Date: 20210301
  Receipt Date: 20210301
  Transmission Date: 20210420
  Serious: Yes (Other)
  Sender: FDA-Public Use
  Company Number: US-BAYER-2021-079768

PATIENT
  Age: 42 Year
  Sex: Male

DRUGS (5)
  1. MONTELUKAST [Suspect]
     Active Substance: MONTELUKAST SODIUM
  2. PREDNISONE. [Suspect]
     Active Substance: PREDNISONE
     Dosage: 10/5 MG QODC
  3. ASPIRIN. [Suspect]
     Active Substance: ASPIRIN
     Dosage: 81 MG
  4. KETOROLAC [Suspect]
     Active Substance: KETOROLAC TROMETHAMINE
     Dosage: 4.16 MG
  5. SABA [Suspect]
     Active Substance: HERBALS\SAW PALMETTO
     Dosage: UNK, {2X/MO

REACTIONS (1)
  - Aspirin-exacerbated respiratory disease [None]
